FAERS Safety Report 8870512 (Version 1)
Quarter: 2012Q4

REPORT INFORMATION
  Report Type: 
  Country: US (occurrence: US)
  Receive Date: 20121026
  Receipt Date: 20121026
  Transmission Date: 20130627
  Serious: No
  Sender: FDA-Public Use
  Company Number: US-AMGEN-USASP2012043442

PATIENT
  Sex: Male
  Weight: 88.89 kg

DRUGS (16)
  1. ENBREL [Suspect]
     Indication: PRODUCT USED FOR UNKNOWN INDICATION
     Dosage: 50 mg/ml, qwk
     Route: 058
  2. METHOTREXATE [Concomitant]
     Dosage: 2.5 mg, UNK
  3. LISINOPRIL/HCTZ [Concomitant]
     Dosage: 10-12.5 UNK, UNK
  4. GABAPENTIN [Concomitant]
     Dosage: 100 mg, UNK
  5. METFORMIN [Concomitant]
     Dosage: 500 mg, UNK
  6. INDOMETHACIN                       /00003801/ [Concomitant]
     Dosage: 50 mg, UNK
  7. SIMVASTATIN [Concomitant]
     Dosage: 10 mg, UNK
  8. FENOFIBRATE [Concomitant]
     Dosage: 200 mg, UNK
  9. ALLOPURINOL [Concomitant]
     Dosage: 100 mg, UNK
  10. ACTOS [Concomitant]
     Dosage: 15 mg, UNK
  11. MULTIVITAMIN                       /00831701/ [Concomitant]
     Dosage: UNK
  12. FOLIC ACID [Concomitant]
     Dosage: UNK
  13. B COMPLEX                          /06817001/ [Concomitant]
     Dosage: UNK
  14. VITAMIN D3 [Concomitant]
     Dosage: UNK
  15. OMEGA-3                            /01168901/ [Concomitant]
     Dosage: UNK
  16. FISH OIL [Concomitant]
     Dosage: UNK

REACTIONS (2)
  - Arthralgia [Unknown]
  - Arthropod bite [Unknown]
